FAERS Safety Report 5488686-4 (Version None)
Quarter: 2007Q4

REPORT INFORMATION
  Report Type: 
  Country: None (occurrence: None)
  Receive Date: 20071017
  Receipt Date: 20071005
  Transmission Date: 20080405
  Serious: Yes (Life-Threatening, Hospitalization, Disabling)
  Sender: FDA-Public Use
  Company Number: GB-PFIZER INC-2007084927

PATIENT
  Age: 67 Year
  Sex: Male

DRUGS (28)
  1. DOXYCYCLINE [Suspect]
     Route: 048
  2. ACOMPLIA [Interacting]
     Indication: WEIGHT DECREASED
     Route: 048
  3. ALLOPURINOL [Concomitant]
     Route: 048
  4. AMOXICILLIN [Concomitant]
     Route: 048
  5. ACETYLSALICYLIC ACID [Concomitant]
     Route: 048
  6. ATORVASTATIN CALCIUM [Concomitant]
     Route: 048
  7. BUDESONIDE [Concomitant]
     Route: 055
  8. CHLORHEXIDINE GLUCONATE [Concomitant]
     Route: 048
  9. CIALIS [Concomitant]
     Route: 048
  10. DAKTACORT [Concomitant]
     Route: 061
  11. DIPROBASE, UNSPECIFIED [Concomitant]
     Route: 061
  12. MINERAL OIL [Concomitant]
     Route: 061
  13. DOXYCYCLINE [Concomitant]
     Route: 048
  14. ERYTHROMYCIN [Concomitant]
     Route: 048
  15. FORMOTEROL FUMARATE [Concomitant]
     Route: 055
  16. FORMOTEROL FUMARATE [Concomitant]
     Route: 055
  17. FUROSEMIDE [Concomitant]
     Route: 048
  18. GLIPIZIDE [Concomitant]
     Route: 048
  19. HYDROCHLOROTHIAZIDE [Concomitant]
     Route: 048
  20. LANSOPRAZOLE [Concomitant]
     Route: 048
  21. LISINOPRIL [Concomitant]
     Route: 048
  22. METFORMIN [Concomitant]
     Route: 048
  23. MICONAZOLE [Concomitant]
  24. PREDNISOLONE [Concomitant]
     Route: 048
  25. RAMIPRIL [Concomitant]
     Route: 048
  26. ROSIGLITAZONE [Concomitant]
     Route: 048
  27. SALAMOL [Concomitant]
     Route: 055
  28. TIOTROPIUM BROMIDE [Concomitant]
     Route: 055

REACTIONS (8)
  - COUGH [None]
  - DERMATITIS EXFOLIATIVE [None]
  - DRUG INTERACTION [None]
  - DYSPNOEA [None]
  - HYPOTENSION [None]
  - PYREXIA [None]
  - RENAL FAILURE ACUTE [None]
  - TOXIC SHOCK SYNDROME [None]
